FAERS Safety Report 5720147-7 (Version None)
Quarter: 2008Q2

REPORT INFORMATION
  Report Type: 
  Country: None (occurrence: None)
  Receive Date: 20080428
  Receipt Date: 20071105
  Transmission Date: 20081010
  Serious: No
  Sender: FDA-Public Use
  Company Number: US-AMGEN-US251715

PATIENT

DRUGS (7)
  1. SENSIPAR [Suspect]
     Indication: HYPERPARATHYROIDISM SECONDARY
  2. MIRALAX [Concomitant]
     Route: 065
  3. NEPHRO-CAPS [Concomitant]
     Route: 065
  4. PHOSLO [Concomitant]
     Route: 065
  5. RENAGEL [Concomitant]
     Route: 065
  6. ZEMPLAR [Concomitant]
     Route: 042
  7. VENOFER [Concomitant]
     Route: 042

REACTIONS (2)
  - ABDOMINAL PAIN UPPER [None]
  - NAUSEA [None]
